FAERS Safety Report 24914974 (Version 1)
Quarter: 2025Q1

REPORT INFORMATION
  Report Type: Spontaneous
  Country: US (occurrence: US)
  Receive Date: 20250203
  Receipt Date: 20250203
  Transmission Date: 20250409
  Serious: No
  Sender: BOEHRINGER INGELHEIM
  Company Number: US-Komodo Health-a23aa000005X6lJAAS

PATIENT
  Age: 82 Year
  Sex: Female

DRUGS (1)
  1. JARDIANCE [Suspect]
     Active Substance: EMPAGLIFLOZIN
     Indication: Cardiac failure

REACTIONS (3)
  - Diarrhoea [Unknown]
  - Appetite disorder [Unknown]
  - Weight decreased [Unknown]

NARRATIVE: CASE EVENT DATE: 20241001
